FAERS Safety Report 4879479-7 (Version None)
Quarter: 2005Q4

REPORT INFORMATION
  Report Type: 
  Country: None (occurrence: None)
  Receive Date: 20051209
  Receipt Date: 20050930
  Transmission Date: 20060501
  Serious: Yes (Death)
  Sender: FDA-Public Use
  Company Number: USA-2005-0021402

PATIENT
  Age: 50 Year
  Sex: Male
  Weight: 99.8 kg

DRUGS (6)
  1. OXYCODONE HCL [Suspect]
  2. HYDROCODONE BITARTRATE [Suspect]
  3. ALPRAZOLAM [Suspect]
  4. COREG [Concomitant]
  5. LORTAB [Concomitant]
  6. XANAX [Concomitant]

REACTIONS (1)
  - MULTIPLE DRUG OVERDOSE ACCIDENTAL [None]
